FAERS Safety Report 24985012 (Version 1)
Quarter: 2025Q1

REPORT INFORMATION
  Report Type: Spontaneous
  Country: CA (occurrence: None)
  Receive Date: 20250219
  Receipt Date: 20250219
  Transmission Date: 20250408
  Serious: Yes (Other)
  Sender: ORION
  Company Number: CA-PFIZER INC-202500033555

PATIENT
  Age: 60 Year
  Sex: Female

DRUGS (16)
  1. METHOTREXATE [Suspect]
     Active Substance: METHOTREXATE
     Indication: Product used for unknown indication
  2. CYCLOSPORINE [Suspect]
     Active Substance: CYCLOSPORINE
     Indication: Product used for unknown indication
  3. COSENTYX [Suspect]
     Active Substance: SECUKINUMAB
     Indication: Ankylosing spondylitis
  4. COSENTYX [Suspect]
     Active Substance: SECUKINUMAB
  5. COSENTYX [Suspect]
     Active Substance: SECUKINUMAB
  6. COSENTYX [Suspect]
     Active Substance: SECUKINUMAB
  7. COSENTYX [Suspect]
     Active Substance: SECUKINUMAB
  8. COSENTYX [Suspect]
     Active Substance: SECUKINUMAB
  9. COSENTYX [Suspect]
     Active Substance: SECUKINUMAB
  10. ACETAMINOPHEN AND CODEINE [Concomitant]
     Active Substance: ACETAMINOPHEN\CODEINE PHOSPHATE
  11. CANNABIS SATIVA FLOWERING TOP [Concomitant]
     Active Substance: CANNABIS SATIVA FLOWERING TOP
  12. CELEBREX [Concomitant]
     Active Substance: CELECOXIB
  13. KETOROLAC [Concomitant]
     Active Substance: KETOROLAC TROMETHAMINE
  14. NAPROXEN [Concomitant]
     Active Substance: NAPROXEN
  15. SIMPONI [Concomitant]
     Active Substance: GOLIMUMAB
  16. VIOXX [Concomitant]
     Active Substance: ROFECOXIB

REACTIONS (10)
  - Off label use [Unknown]
  - Apathy [Recovered/Resolved]
  - Hypersensitivity [Recovered/Resolved]
  - Illness [Recovered/Resolved]
  - Lethargy [Recovered/Resolved]
  - Limb crushing injury [Recovered/Resolved]
  - Muscle tightness [Recovered/Resolved]
  - Nasopharyngitis [Recovered/Resolved]
  - Psoriasis [Recovered/Resolved]
  - Throat irritation [Recovered/Resolved]
